FAERS Safety Report 19061344 (Version 1)
Quarter: 2021Q1

REPORT INFORMATION
  Report Type: Spontaneous
  Country: US (occurrence: US)
  Receive Date: 20210325
  Receipt Date: 20210325
  Transmission Date: 20210420
  Serious: No
  Sender: FDA-Public Use
  Company Number: US-ELI_LILLY_AND_COMPANY-US202103007884

PATIENT
  Sex: Female

DRUGS (1)
  1. BAMLANIVIMAB 700MG [Suspect]
     Active Substance: BAMLANIVIMAB
     Indication: PRODUCT USED FOR UNKNOWN INDICATION
     Dosage: UNK, SINGLE
     Route: 065
     Dates: start: 202012, end: 202012

REACTIONS (6)
  - Alopecia [Unknown]
  - Fatigue [Unknown]
  - Memory impairment [Unknown]
  - Feeling abnormal [Unknown]
  - Sleep disorder [Unknown]
  - Speech disorder [Unknown]
